FAERS Safety Report 16983403 (Version 1)
Quarter: 2019Q4

REPORT INFORMATION
  Report Type: Spontaneous
  Country: US (occurrence: US)
  Receive Date: 20191030
  Receipt Date: 20191030
  Transmission Date: 20200122
  Serious: Yes (Life-Threatening)
  Sender: FDA-Public Use
  Company Number: None

PATIENT
  Age: 51 Year
  Sex: Female
  Weight: 110 kg

DRUGS (1)
  1. BIVALIRUDIN. [Suspect]
     Active Substance: BIVALIRUDIN
     Indication: PERCUTANEOUS CORONARY INTERVENTION
     Route: 041

REACTIONS (5)
  - Ventricular fibrillation [None]
  - Therapeutic response decreased [None]
  - Coronary artery occlusion [None]
  - Suspected product quality issue [None]
  - Thrombosis [None]

NARRATIVE: CASE EVENT DATE: 20191030
